FAERS Safety Report 6912886-7 (Version None)
Quarter: 2010Q3

REPORT INFORMATION
  Report Type: 
  Country: None (occurrence: None)
  Receive Date: 20100806
  Receipt Date: 20090309
  Transmission Date: 20110219
  Serious: No
  Sender: FDA-Public Use
  Company Number: US-PFIZER INC-2009160922

PATIENT

DRUGS (20)
  1. VFEND [Suspect]
     Dosage: UNK
  2. APAP TAB [Concomitant]
  3. ALBUMIN HUMAN [Concomitant]
  4. CEFTAZIDIME [Concomitant]
  5. CLONIDINE [Concomitant]
  6. CYCLOSPORINE [Concomitant]
  7. NOREPINEPHRINE [Concomitant]
  8. AMLODIPINE OROTATE [Concomitant]
  9. DIPHENHYDRAMINE [Concomitant]
  10. FENTANYL CITRATE [Concomitant]
  11. FUROSEMIDE [Concomitant]
  12. GRANISETRON [Concomitant]
  13. LABETALOL [Concomitant]
  14. HYDROCORTISONE [Concomitant]
  15. MAGNESIUM [Concomitant]
  16. METHYLPREDNISOLONE [Concomitant]
  17. ONDANSETRON HYDROCHLORIDE [Concomitant]
  18. BACTRIM [Concomitant]
  19. SPIRONOLACTONE [Concomitant]
  20. VANCOMYCIN [Concomitant]

REACTIONS (2)
  - DRUG LEVEL DECREASED [None]
  - RENAL IMPAIRMENT [None]
